FAERS Safety Report 7627490-5 (Version None)
Quarter: 2011Q3

REPORT INFORMATION
  Report Type: 
  Country: None (occurrence: None)
  Receive Date: 20110721
  Receipt Date: 20110714
  Transmission Date: 20111222
  Serious: Yes (Hospitalization, Other)
  Sender: FDA-Public Use
  Company Number: US-TEVA-287996USA

PATIENT
  Sex: Female

DRUGS (1)
  1. JUNEL FE 1.5/30 [Suspect]
     Indication: CONTRACEPTION

REACTIONS (10)
  - LOSS OF CONSCIOUSNESS [None]
  - AMENORRHOEA [None]
  - ECTOPIC PREGNANCY [None]
  - OVARIAN CYST [None]
  - MENSTRUATION IRREGULAR [None]
  - APPENDIX DISORDER [None]
  - CHOLELITHIASIS [None]
  - ASTHENIA [None]
  - NAUSEA [None]
  - PREGNANCY ON ORAL CONTRACEPTIVE [None]
